FAERS Safety Report 11123223 (Version 1)
Quarter: 2015Q2

REPORT INFORMATION
  Report Type: Spontaneous
  Country: US (occurrence: US)
  Receive Date: 20150519
  Receipt Date: 20150519
  Transmission Date: 20150821
  Serious: No
  Sender: FDA-Public Use
  Company Number: US-ENDO PHARMACEUTICALS INC.-2015-000560

PATIENT
  Age: 23 Year
  Sex: Male
  Weight: 72.64 kg

DRUGS (1)
  1. XIAFLEX [Suspect]
     Active Substance: COLLAGENASE CLOSTRIDIUM HISTOLYTICUM
     Indication: PEYRONIE^S DISEASE
     Route: 065
     Dates: start: 20150415

REACTIONS (5)
  - Discomfort [Unknown]
  - Penile swelling [Recovering/Resolving]
  - Penile pain [Recovering/Resolving]
  - Penile contusion [Recovering/Resolving]
  - Painful erection [Unknown]

NARRATIVE: CASE EVENT DATE: 20150415
